FAERS Safety Report 16005366 (Version 2)
Quarter: 2019Q2

REPORT INFORMATION
  Report Type: Spontaneous
  Country: US (occurrence: US)
  Receive Date: 20190226
  Receipt Date: 20190425
  Transmission Date: 20190711
  Serious: No
  Sender: FDA-Public Use
  Company Number: US-PFIZER INC-2019072977

PATIENT
  Age: 56 Year
  Sex: Female

DRUGS (4)
  1. WELLBUTRIN [Concomitant]
     Active Substance: BUPROPION HYDROCHLORIDE
     Indication: DEPRESSION
     Dosage: 150 MG, UNK
     Dates: start: 2017
  2. CHANTIX [Suspect]
     Active Substance: VARENICLINE TARTRATE
     Dosage: 1 MG, UNK
  3. CHANTIX [Suspect]
     Active Substance: VARENICLINE TARTRATE
     Indication: SMOKING CESSATION THERAPY
     Dosage: 0.5 MG, UNK
     Dates: start: 201807
  4. CHANTIX [Suspect]
     Active Substance: VARENICLINE TARTRATE
     Dosage: 0.25 MG, UNK

REACTIONS (4)
  - Hypoacusis [Unknown]
  - Intentional product misuse [Unknown]
  - Nausea [Unknown]
  - Drug ineffective [Unknown]
